FAERS Safety Report 4285703-4 (Version None)
Quarter: 2004Q1

REPORT INFORMATION
  Report Type: 
  Country: None (occurrence: None)
  Receive Date: 20040203
  Receipt Date: 20040121
  Transmission Date: 20041129
  Serious: Yes (Life-Threatening, Other)
  Sender: FDA-Public Use
  Company Number: CA-JNJFOC-20030603550

PATIENT
  Age: 31 Year
  Sex: Female
  Weight: 58 kg

DRUGS (14)
  1. REMICADE [Suspect]
     Indication: CROHN'S DISEASE
     Dosage: SEE IMAGE
     Route: 042
     Dates: start: 20020812, end: 20020812
  2. REMICADE [Suspect]
     Indication: CROHN'S DISEASE
     Dosage: SEE IMAGE
     Route: 042
     Dates: start: 20021003, end: 20021003
  3. REMICADE [Suspect]
     Indication: CROHN'S DISEASE
     Dosage: SEE IMAGE
     Route: 042
     Dates: start: 20021204, end: 20021204
  4. REMICADE [Suspect]
     Indication: CROHN'S DISEASE
     Dosage: SEE IMAGE
     Route: 042
     Dates: start: 20030127, end: 20030127
  5. REMICADE [Suspect]
     Indication: CROHN'S DISEASE
     Dosage: SEE IMAGE
     Route: 042
     Dates: start: 20030409, end: 20030409
  6. REMICADE [Suspect]
     Indication: CROHN'S DISEASE
     Dosage: SEE IMAGE
     Route: 042
     Dates: start: 20030526, end: 20030526
  7. REMICADE [Suspect]
     Indication: CROHN'S DISEASE
     Dosage: SEE IMAGE
     Route: 042
     Dates: start: 20030609, end: 20030609
  8. REMICADE [Suspect]
     Indication: CROHN'S DISEASE
     Dosage: SEE IMAGE
     Route: 042
     Dates: start: 20030801
  9. ANTIDEPRESSANTS (ANTIDEPRESSANTS) [Concomitant]
  10. AZATHIOPRINE [Concomitant]
  11. PREDNISONE [Concomitant]
  12. CENTRUM SELECT (CENTRUM SELECT) [Concomitant]
  13. VITAMIN E [Concomitant]
  14. VITAMIN C (ASCORBIC ACID) [Concomitant]

REACTIONS (12)
  - ABDOMINAL DISTENSION [None]
  - CHEST DISCOMFORT [None]
  - DIZZINESS [None]
  - DYSPNOEA [None]
  - FACIAL PALSY [None]
  - HEADACHE [None]
  - HYPERSENSITIVITY [None]
  - INFLUENZA LIKE ILLNESS [None]
  - NAUSEA [None]
  - PARAESTHESIA [None]
  - URTICARIA [None]
  - VOMITING [None]
